FAERS Safety Report 9357057 (Version 3)
Quarter: 2013Q2

REPORT INFORMATION
  Report Type: Spontaneous
  Country: US (occurrence: None)
  Receive Date: 20130617
  Receipt Date: 20130628
  Transmission Date: 20140414
  Serious: Yes (Disabling, Other)
  Sender: FDA-Public Use
  Company Number: ACO_36664_2013

PATIENT
  Sex: Female

DRUGS (3)
  1. AMPYRA [Suspect]
     Indication: PRODUCT USED FOR UNKNOWN INDICATION
     Dates: start: 201303
  2. IBUPROFEN [Concomitant]
  3. AVONEX [Concomitant]

REACTIONS (5)
  - Dysstasia [None]
  - Fall [None]
  - Muscular weakness [None]
  - Inability to crawl [None]
  - Headache [None]
